FAERS Safety Report 7619120-3 (Version None)
Quarter: 2011Q3

REPORT INFORMATION
  Report Type: 
  Country: None (occurrence: None)
  Receive Date: 20110718
  Receipt Date: 20110708
  Transmission Date: 20111222
  Serious: Yes (Hospitalization, Other)
  Sender: FDA-Public Use
  Company Number: US-ASTRAZENECA-2011SE33875

PATIENT
  Age: 73 Year
  Sex: Female

DRUGS (9)
  1. SYMBICORT [Suspect]
     Dosage: 80 2 PUFFS ONCE A DAY
     Route: 055
  2. CARTIA XT [Concomitant]
  3. ALENDRONATE SODIUM [Concomitant]
  4. METHOCARBAMOL [Concomitant]
     Indication: MYALGIA
  5. ATACAND [Suspect]
     Route: 048
  6. ZYRTEC [Concomitant]
     Indication: HYPERSENSITIVITY
  7. SINGULAIR [Concomitant]
     Dosage: 1 A DAY
  8. LEVOXYL [Concomitant]
  9. SYMBICORT [Suspect]
     Dosage: 160 2 PUFFS TWO TIMES A DAY
     Route: 055
     Dates: start: 20110301

REACTIONS (7)
  - LUNG DISORDER [None]
  - KNEE ARTHROPLASTY [None]
  - BACK INJURY [None]
  - ASTHMA [None]
  - HYPERTENSION [None]
  - PAIN [None]
  - SPINAL FRACTURE [None]
